FAERS Safety Report 5260765-6 (Version None)
Quarter: 2007Q1

REPORT INFORMATION
  Report Type: 
  Country: None (occurrence: None)
  Receive Date: 20070309
  Receipt Date: 20070226
  Transmission Date: 20070707
  Serious: Yes (Death, Life-Threatening)
  Sender: FDA-Public Use
  Company Number: JP-MERCK-0702USA01845

PATIENT
  Age: 86 Year
  Sex: Female

DRUGS (8)
  1. PURSENNID [Concomitant]
     Indication: CONSTIPATION
     Route: 048
     Dates: start: 20061121, end: 20070209
  2. ARGAMATE JELLY [Concomitant]
     Indication: HYPERKALAEMIA
     Route: 048
     Dates: start: 20070105, end: 20070209
  3. COZAAR [Suspect]
     Indication: HYPERTENSION
     Route: 048
     Dates: start: 20060803, end: 20070207
  4. ALDACTONE [Suspect]
     Indication: CARDIAC FAILURE
     Route: 048
     Dates: start: 20040407, end: 20070207
  5. LASIX [Concomitant]
     Indication: CARDIAC FAILURE
     Route: 065
     Dates: start: 20040407, end: 20070209
  6. TAKEPRON [Concomitant]
     Indication: REFLUX OESOPHAGITIS
     Route: 065
     Dates: start: 20060410, end: 20070209
  7. LENDORMIN [Concomitant]
     Indication: INSOMNIA
     Route: 048
     Dates: end: 20070209
  8. ZOLPIDEM TARTRATE [Concomitant]
     Indication: INSOMNIA
     Route: 048
     Dates: end: 20070209

REACTIONS (1)
  - HYPERKALAEMIA [None]
